FAERS Safety Report 4637207-4 (Version None)
Quarter: 2005Q1

REPORT INFORMATION
  Report Type: 
  Country: None (occurrence: None)
  Receive Date: 20050325
  Receipt Date: 20041201
  Transmission Date: 20050727
  Serious: No
  Sender: FDA-Public Use
  Company Number: USA041285091

PATIENT
  Age: 65 Year
  Sex: Female
  Weight: 59 kg

DRUGS (7)
  1. FORTEO [Suspect]
     Indication: OSTEOPOROSIS
     Dosage: 20 UG/1 DAY
     Dates: start: 20041001
  2. PROZAC [Suspect]
     Indication: INJURY
     Dosage: 10 MG/1 DAY
     Dates: start: 19930101, end: 19970101
  3. CALCIUM GLUCONATE [Concomitant]
  4. LEXAPRO [Concomitant]
  5. IBUPROFEN [Concomitant]
  6. COLESTID [Concomitant]
  7. FEMARA [Concomitant]

REACTIONS (16)
  - APATHY [None]
  - ARTHRALGIA [None]
  - ASTHENIA [None]
  - BODY HEIGHT DECREASED [None]
  - DIARRHOEA [None]
  - DISTURBANCE IN ATTENTION [None]
  - DIZZINESS [None]
  - FEELING ABNORMAL [None]
  - HEADACHE [None]
  - HYPOTONIA [None]
  - INJECTION SITE ERYTHEMA [None]
  - INJECTION SITE IRRITATION [None]
  - INJECTION SITE REACTION [None]
  - LACTOSE INTOLERANCE [None]
  - NAUSEA [None]
  - URINARY TRACT INFECTION [None]
